FAERS Safety Report 8916531 (Version 1)
Quarter: 2012Q4

REPORT INFORMATION
  Report Type: 
  Country: US (occurrence: US)
  Receive Date: 20121120
  Receipt Date: 20121120
  Transmission Date: 20130627
  Serious: No
  Sender: FDA-Public Use
  Company Number: US-ASTRAZENECA-2012SE85267

PATIENT
  Age: 82 Year
  Sex: Male
  Weight: 56.7 kg

DRUGS (8)
  1. SEROQUEL [Suspect]
     Indication: AGITATION
     Dosage: GENERIC,25mg as required
     Route: 048
     Dates: start: 20121029
  2. SEROQUEL [Suspect]
     Indication: ANXIETY
     Dosage: GENERIC,25mg as required
     Route: 048
     Dates: start: 20121029
  3. SEROQUEL [Suspect]
     Indication: AGITATION
     Route: 048
  4. SEROQUEL [Suspect]
     Indication: ANXIETY
     Route: 048
  5. MAMENDA [Concomitant]
     Indication: DEMENTIA
  6. ICDONEPEZIL HCL [Concomitant]
     Indication: DEMENTIA
  7. MIRTARAPIN [Concomitant]
     Indication: DEPRESSION
  8. AVELOX [Concomitant]
     Dosage: DAILY

REACTIONS (3)
  - Somnolence [Unknown]
  - Chills [Unknown]
  - Off label use [Unknown]
